FAERS Safety Report 15736051 (Version 1)
Quarter: 2018Q4

REPORT INFORMATION
  Report Type: Spontaneous
  Country: NL (occurrence: NL)
  Receive Date: 20181218
  Receipt Date: 20181218
  Transmission Date: 20190205
  Serious: Yes (Hospitalization)
  Sender: FDA-Public Use
  Company Number: NL-TEVA-2018-NL-987729

PATIENT
  Age: 32 Year
  Sex: Female
  Weight: 83 kg

DRUGS (10)
  1. HALDOL [Suspect]
     Active Substance: HALOPERIDOL
     Indication: TOURETTE^S DISORDER
     Dosage: 2 X D 2 MGR
     Dates: start: 1993
  2. SEROQUEL (QUETIAPINE) / TABLET MET GEREGULEERDE AFGIFTE, 50 MG (MILLIG [Suspect]
     Active Substance: QUETIAPINE
     Indication: PRODUCT USED FOR UNKNOWN INDICATION
     Dates: start: 2011
  3. PAROXETINE TABLET, 30 MG (MILLIGRAM) [Suspect]
     Active Substance: PAROXETINE
     Indication: PRODUCT USED FOR UNKNOWN INDICATION
     Dosage: 1 X D 1 TABLET
     Route: 065
     Dates: start: 2012
  4. TRUXAL (CHLOORPROTIXEEN) FILMOMHULDE TABLET, 15 MG (MILLIGRAM)TRUXAL T [Suspect]
     Active Substance: CHLORPROTHIXENE
     Indication: PRODUCT USED FOR UNKNOWN INDICATION
     Dosage: 2 X D 1 TABLET
     Dates: start: 2003
  5. SEROQUEL (QUETIAPINE) FILMOMHULDE TABLET, 25 MG (MILLIGRAM) [Suspect]
     Active Substance: QUETIAPINE
     Indication: PRODUCT USED FOR UNKNOWN INDICATION
     Dates: start: 2011
  6. DIPIPERON (PIPAMPERON) DRUPPELS, 40 MG/ML (MILLIGRAM PER MILLILITER)DI [Suspect]
     Active Substance: PIPAMPERONE HYDROCHLORIDE
     Indication: TOURETTE^S DISORDER
     Dosage: 2 X D
  7. ORAP [Suspect]
     Active Substance: PIMOZIDE
     Indication: TOURETTE^S DISORDER
     Dates: start: 1992
  8. DIPIPERON (PIPAMPERON) DRUPPELS, 40 MG/ML (MILLIGRAM PER MILLILITER)DI [Suspect]
     Active Substance: PIPAMPERONE HYDROCHLORIDE
     Indication: PRODUCT USED FOR UNKNOWN INDICATION
     Dates: start: 2011
  9. SEROQUEL (QUETIAPINE) / TABLET MET GEREGULEERDE AFGIFTE, 400 MG (MILLI [Suspect]
     Active Substance: QUETIAPINE
     Indication: PRODUCT USED FOR UNKNOWN INDICATION
     Dosage: 1 X D 1 TABLET X 1 VAN 300 MG TOTAAL 700MG P D
     Dates: start: 2011
  10. FLUANXOL (FLUPENTIXOL) TABLET, 5 MG (MILLIGRAM)FLUANXOL TABLET FILMOMH [Suspect]
     Active Substance: FLUPENTIXOL
     Indication: PRODUCT USED FOR UNKNOWN INDICATION
     Dosage: 2 X D 1 TABLET
     Dates: start: 2003

REACTIONS (2)
  - Withdrawal syndrome [Recovered/Resolved with Sequelae]
  - Tardive dyskinesia [Recovered/Resolved with Sequelae]

NARRATIVE: CASE EVENT DATE: 2014
